FAERS Safety Report 5776828-2 (Version None)
Quarter: 2008Q2

REPORT INFORMATION
  Report Type: 
  Country: None (occurrence: None)
  Receive Date: 20080616
  Receipt Date: 20080604
  Transmission Date: 20081010
  Serious: Yes (Hospitalization)
  Sender: FDA-Public Use
  Company Number: GXKR2008US05112

PATIENT
  Age: 42 Year
  Sex: Male

DRUGS (6)
  1. PRAZOSIN (NGX) (PRAZOSIN) UNKNOWN [Suspect]
     Indication: NIGHTMARE
     Dosage: 1 MG, QD, AT NIGHT, ORAL
     Route: 048
  2. CITALOPRAM HYDROBROMIDE [Concomitant]
  3. HYDROXYCHLOROQUINE SULFATE [Concomitant]
  4. INSULIN (INSULIN) [Concomitant]
  5. LISINOPRIL [Concomitant]
  6. OXYCODONE HCL [Concomitant]

REACTIONS (7)
  - ABNORMAL BEHAVIOUR [None]
  - ALTERED STATE OF CONSCIOUSNESS [None]
  - APATHY [None]
  - DISSOCIATION [None]
  - FEAR [None]
  - IMPAIRED DRIVING ABILITY [None]
  - SUICIDAL IDEATION [None]
